FAERS Safety Report 8049602-4 (Version None)
Quarter: 2012Q1

REPORT INFORMATION
  Report Type: 
  Country: None (occurrence: None)
  Receive Date: 20120117
  Receipt Date: 20120110
  Transmission Date: 20120608
  Serious: Yes (Hospitalization)
  Sender: FDA-Public Use
  Company Number: US-ROCHE-1029004

PATIENT
  Sex: Female
  Weight: 104 kg

DRUGS (19)
  1. LEVOTHROID [Concomitant]
  2. OXYCODONE HCL [Concomitant]
  3. ZOFRAN [Concomitant]
  4. LANTUS [Concomitant]
  5. METFORMIN HCL [Concomitant]
  6. NOVOLOG [Concomitant]
  7. AVASTIN [Suspect]
     Indication: BILE DUCT CANCER
     Route: 042
     Dates: start: 20111110, end: 20111222
  8. ALBUTEROL [Concomitant]
  9. LISINOPRIL [Concomitant]
  10. OMEPRAZOLE [Concomitant]
  11. XELODA [Suspect]
     Indication: BILE DUCT CANCER
     Dosage: FREQUENCY REPORTED AS:4 DAYS ON 1 WEEK OFF
     Dates: start: 20111110, end: 20111225
  12. FAMOTIDINE [Concomitant]
  13. GABAPENTIN [Concomitant]
  14. SPIRIVA [Concomitant]
  15. SINGULAIR [Concomitant]
  16. POTASSIUM CHLORIDE [Concomitant]
  17. GEMCITABINE HYDROCHLORIDE [Suspect]
     Indication: BILE DUCT CANCER
     Dosage: FREQUENCY REPORTED AS:2 WEEKS ON 1 WEEK OFF
     Dates: start: 20111110, end: 20111222
  18. METHADONE HCL [Concomitant]
  19. VOLTAREN [Concomitant]

REACTIONS (1)
  - CHOLANGITIS [None]
